FAERS Safety Report 5482930-5 (Version None)
Quarter: 2007Q4

REPORT INFORMATION
  Report Type: 
  Country: None (occurrence: None)
  Receive Date: 20071011
  Receipt Date: 20071004
  Transmission Date: 20080405
  Serious: Yes (Other)
  Sender: FDA-Public Use
  Company Number: US-SANOFI-SYNTHELABO-A03200705845

PATIENT
  Sex: Male

DRUGS (4)
  1. ELIGARD [Suspect]
     Indication: PROSTATE CANCER
     Dosage: 30 MG EVERY 4 MONTHS
     Route: 058
     Dates: start: 20070501, end: 20070501
  2. ELIGARD [Suspect]
     Dosage: 30 MG EVERY 4 MONTHS
     Route: 058
     Dates: start: 20070902, end: 20070902
  3. COUMADIN [Concomitant]
     Indication: DRUG USE FOR UNKNOWN INDICATION
     Dosage: UNK
     Route: 065
  4. DIOVAN [Concomitant]
     Indication: DRUG USE FOR UNKNOWN INDICATION
     Dosage: UNK
     Route: 065

REACTIONS (6)
  - DEEP VEIN THROMBOSIS [None]
  - PULMONARY EMBOLISM [None]
  - RASH PRURITIC [None]
  - SWELLING FACE [None]
  - VISUAL DISTURBANCE [None]
  - VITREOUS LOSS [None]
